FAERS Safety Report 23299991 (Version 1)
Quarter: 2023Q4

REPORT INFORMATION
  Report Type: Spontaneous
  Country: FR (occurrence: FR)
  Receive Date: 20231215
  Receipt Date: 20231215
  Transmission Date: 20240109
  Serious: Yes (Hospitalization)
  Sender: FDA-Public Use
  Company Number: None

PATIENT
  Age: 70 Year
  Weight: 76.1 kg

DRUGS (7)
  1. LOPERAMIDE [Suspect]
     Active Substance: LOPERAMIDE
     Indication: Diarrhoea
     Route: 048
  2. PAROXETINE [Suspect]
     Active Substance: PAROXETINE
     Indication: Depression
     Route: 048
     Dates: end: 20230907
  3. MORPHINE SULFATE [Suspect]
     Active Substance: MORPHINE SULFATE
     Indication: Pain
     Route: 048
  4. HAWTHORN LEAF WITH FLOWER\QUININE [Suspect]
     Active Substance: HAWTHORN LEAF WITH FLOWER\QUININE
     Indication: Product used for unknown indication
     Route: 048
  5. SKENAN [Suspect]
     Active Substance: MORPHINE SULFATE
     Indication: Pain
     Route: 048
  6. ACAMPROSATE CALCIUM [Suspect]
     Active Substance: ACAMPROSATE CALCIUM
     Indication: Alcoholism
     Dosage: ACAMPROSATE CALCIQUE
     Route: 048
     Dates: end: 20230906
  7. METOCLOPRAMIDE [Suspect]
     Active Substance: METOCLOPRAMIDE
     Indication: Antiemetic supportive care
     Route: 048
     Dates: end: 20230906

REACTIONS (4)
  - Hypertonia [Recovered/Resolved]
  - Miosis [Recovered/Resolved]
  - Neurological decompensation [Recovering/Resolving]
  - Musculoskeletal stiffness [Recovering/Resolving]

NARRATIVE: CASE EVENT DATE: 20230801
